FAERS Safety Report 12643819 (Version 1)
Quarter: 2016Q3

REPORT INFORMATION
  Report Type: Spontaneous
  Country: US (occurrence: US)
  Receive Date: 20160811
  Receipt Date: 20160811
  Transmission Date: 20161109
  Serious: Yes (Hospitalization, Other)
  Sender: FDA-Public Use
  Company Number: US-IPCA LABORATORIES LIMITED-E2B_00000028

PATIENT
  Age: 63 Year
  Sex: Female

DRUGS (25)
  1. AVASTIN [Suspect]
     Active Substance: BEVACIZUMAB
     Indication: METASTASES TO PERITONEUM
     Dates: end: 201005
  2. FOLFIRI CHEMOTHERAPY REGIMEN [Suspect]
     Active Substance: FLUOROURACIL\IRINOTECAN\LEUCOVORIN
     Indication: METASTASES TO PERITONEUM
     Dates: start: 2007
  3. FOLFIRI CHEMOTHERAPY REGIMEN [Suspect]
     Active Substance: FLUOROURACIL\IRINOTECAN\LEUCOVORIN
     Indication: RETROPERITONEAL CANCER
     Dates: start: 201105
  4. CITALOPRAM [Concomitant]
     Active Substance: CITALOPRAM HYDROBROMIDE
  5. ZANTAC [Concomitant]
     Active Substance: RANITIDINE HYDROCHLORIDE
  6. ZOLPIDEM [Concomitant]
     Active Substance: ZOLPIDEM\ZOLPIDEM TARTRATE
  7. FOLFIRI CHEMOTHERAPY REGIMEN [Suspect]
     Active Substance: FLUOROURACIL\IRINOTECAN\LEUCOVORIN
     Indication: ADENOCARCINOMA OF APPENDIX
     Dates: end: 201005
  8. MECLIZINE [Concomitant]
     Active Substance: MECLIZINE HYDROCHLORIDE
  9. METOPROLOL. [Concomitant]
     Active Substance: METOPROLOL
  10. ZOFRAN [Concomitant]
     Active Substance: ONDANSETRON HYDROCHLORIDE
  11. BENADRYL [Concomitant]
     Active Substance: DIPHENHYDRAMINE HYDROCHLORIDE
  12. LORAZEPAM. [Concomitant]
     Active Substance: LORAZEPAM
  13. AVASTIN [Suspect]
     Active Substance: BEVACIZUMAB
     Indication: ADENOCARCINOMA OF APPENDIX
     Dates: start: 2007
  14. LANSOPRAZOLE. [Suspect]
     Active Substance: LANSOPRAZOLE
  15. AVASTIN [Suspect]
     Active Substance: BEVACIZUMAB
     Indication: RETROPERITONEAL CANCER
     Dates: start: 201105
  16. AVASTIN [Suspect]
     Active Substance: BEVACIZUMAB
     Dates: start: 201210
  17. CELECOXIB. [Concomitant]
     Active Substance: CELECOXIB
  18. METFORMIN HYDROCHLORIDE. [Suspect]
     Active Substance: METFORMIN HYDROCHLORIDE
  19. IRINOTECAN [Suspect]
     Active Substance: IRINOTECAN
  20. HYDROCOCDONE [Concomitant]
  21. LIPITOR [Concomitant]
     Active Substance: ATORVASTATIN CALCIUM
  22. AMITRIPTYLINE [Concomitant]
     Active Substance: AMITRIPTYLINE
  23. XELODA [Suspect]
     Active Substance: CAPECITABINE
     Indication: RETROPERITONEAL CANCER
     Dates: start: 201005
  24. IRINOTECAN [Suspect]
     Active Substance: IRINOTECAN
     Indication: METASTASES TO PERITONEUM
  25. VITAMIN D [Concomitant]
     Active Substance: CHOLECALCIFEROL

REACTIONS (6)
  - Metastases to peritoneum [None]
  - Tooth disorder [None]
  - Hypomagnesaemia [Not Recovered/Not Resolved]
  - Alopecia [None]
  - Diarrhoea [Not Recovered/Not Resolved]
  - Abdominal hernia [None]
